FAERS Safety Report 17460434 (Version 7)
Quarter: 2020Q3

REPORT INFORMATION
  Report Type: Spontaneous
  Country: US (occurrence: US)
  Receive Date: 20200226
  Receipt Date: 20200930
  Transmission Date: 20201102
  Serious: Yes (Hospitalization)
  Sender: FDA-Public Use
  Company Number: US-PFIZER INC-2019406220

PATIENT
  Age: 70 Year
  Sex: Male

DRUGS (2)
  1. CAMPTOSAR [Suspect]
     Active Substance: IRINOTECAN HYDROCHLORIDE
     Dosage: UNK, CYCLIC (EVERY 2 WEEKS)
  2. CAMPTOSAR [Suspect]
     Active Substance: IRINOTECAN HYDROCHLORIDE
     Indication: RECTAL CANCER
     Dosage: 290 MG, CYCLIC (DAILY EVERY 14 DAYS)

REACTIONS (10)
  - Confusional state [Unknown]
  - Muscular weakness [Unknown]
  - Hypoaesthesia [Unknown]
  - Fatigue [Not Recovered/Not Resolved]
  - Diarrhoea [Unknown]
  - Tremor [Unknown]
  - Neoplasm progression [Unknown]
  - Pain in extremity [Unknown]
  - Faeces discoloured [Unknown]
  - Asthenia [Unknown]
